FAERS Safety Report 9737055 (Version 2)
Quarter: 2013Q4

REPORT INFORMATION
  Report Type: Report from Study
  Country: US (occurrence: US)
  Receive Date: 20131206
  Receipt Date: 20131206
  Transmission Date: 20140711
  Serious: Yes (Death)
  Sender: FDA-Public Use
  Company Number: US-PFIZER INC-2013337862

PATIENT
  Age: 69 Year
  Sex: Male
  Weight: 110.45 kg

DRUGS (5)
  1. NO SUBJECT DRUG [Suspect]
     Indication: ADENOCARCINOMA OF COLON
     Dosage: NO DOSE GIVEN
     Route: 048
  2. FLUOROURACIL [Suspect]
     Indication: ADENOCARCINOMA OF COLON
     Dosage: 400 MG/M2 ON DAY 1
     Route: 042
     Dates: start: 20110927, end: 20110927
  3. FLUOROURACIL [Suspect]
     Dosage: 2400 MG/M2 OVER 46-48 HOURS ON DAY 1
     Route: 042
     Dates: start: 20110927, end: 20110927
  4. ELOXATIN [Concomitant]
     Indication: ADENOCARCINOMA OF COLON
     Dosage: 85 MG/M2 OVER 2 HOURS ON DAY 1
     Route: 042
     Dates: start: 20110927, end: 20110927
  5. LEUCOVORIN CALCIUM [Concomitant]
     Indication: ADENOCARCINOMA OF COLON
     Dosage: 400 MG/M2 OVER 2 HOURS ON DAY 1
     Route: 042
     Dates: start: 20110927, end: 20110927

REACTIONS (1)
  - Sudden death [Fatal]
